FAERS Safety Report 14976070 (Version 2)
Quarter: 2019Q2

REPORT INFORMATION
  Report Type: Spontaneous
  Country: US (occurrence: US)
  Receive Date: 20180605
  Receipt Date: 20190619
  Transmission Date: 20190711
  Serious: No
  Sender: FDA-Public Use
  Company Number: US-ROCHE-2102698

PATIENT

DRUGS (1)
  1. ACTEMRA [Suspect]
     Active Substance: TOCILIZUMAB
     Indication: RHEUMATOID ARTHRITIS
     Dosage: DOSES LESS THAN 300 MG
     Route: 042
     Dates: start: 201704

REACTIONS (3)
  - Adverse reaction [Unknown]
  - Pharyngeal swelling [Recovered/Resolved]
  - Swelling face [Recovered/Resolved]
